FAERS Safety Report 8957572 (Version 3)
Quarter: 2013Q1

REPORT INFORMATION
  Report Type: Spontaneous
  Country: SE (occurrence: SE)
  Receive Date: 20121211
  Receipt Date: 20130212
  Transmission Date: 20140127
  Serious: Yes (Hospitalization)
  Sender: FDA-Public Use
  Company Number: SE-ROCHE-1165416

PATIENT
  Age: 45 Year
  Sex: Female

DRUGS (8)
  1. ROACTEMRA [Suspect]
     Indication: SERONEGATIVE ARTHRITIS
     Dosage: 20 MG/ML
     Route: 042
     Dates: start: 20101111, end: 20110110
  2. LIPITOR [Concomitant]
  3. OMEPRAZOLE [Concomitant]
  4. OPTINATE [Concomitant]
  5. PROGYNON [Concomitant]
     Route: 065
  6. CITODON [Concomitant]
  7. PREDNISOLONE [Concomitant]
  8. CALCICHEW D3 [Concomitant]

REACTIONS (3)
  - Dizziness [Recovered/Resolved with Sequelae]
  - Balance disorder [Recovered/Resolved with Sequelae]
  - Hearing impaired [Recovered/Resolved with Sequelae]
